FAERS Safety Report 6291405-5 (Version None)
Quarter: 2009Q3

REPORT INFORMATION
  Report Type: 
  Country: None (occurrence: None)
  Receive Date: 20090729
  Receipt Date: 20090729
  Transmission Date: 20100115
  Serious: Yes (Other)
  Sender: FDA-Public Use
  Company Number: None

PATIENT
  Age: 41 Year
  Sex: Male
  Weight: 86.1834 kg

DRUGS (2)
  1. SINGULAIR [Suspect]
     Indication: ASTHMA
     Dosage: 10MG  DAILY PO
     Route: 048
     Dates: start: 20090309, end: 20090515
  2. SINGULAIR [Suspect]
     Indication: HYPERSENSITIVITY
     Dosage: 10MG  DAILY PO
     Route: 048
     Dates: start: 20090309, end: 20090515

REACTIONS (6)
  - ANXIETY [None]
  - DEPRESSION [None]
  - HYPOAESTHESIA [None]
  - PARAESTHESIA [None]
  - PERSONALITY CHANGE [None]
  - THINKING ABNORMAL [None]
